FAERS Safety Report 18115699 (Version 1)
Quarter: 2020Q3

REPORT INFORMATION
  Report Type: Spontaneous
  Country: US (occurrence: US)
  Receive Date: 20200805
  Receipt Date: 20200805
  Transmission Date: 20201103
  Serious: No
  Sender: FDA-Public Use
  Company Number: US-SA-2020SA202840

PATIENT

DRUGS (1)
  1. DUPIXENT [Suspect]
     Active Substance: DUPILUMAB
     Indication: DERMATITIS ATOPIC
     Dosage: 300 MG (FREQUENCY: EVERY 14 DAYS)
     Route: 058
     Dates: start: 202005

REACTIONS (1)
  - Eyelid pain [Recovered/Resolved]

NARRATIVE: CASE EVENT DATE: 202007
